FAERS Safety Report 25038110 (Version 2)
Quarter: 2025Q3

REPORT INFORMATION
  Report Type: Spontaneous
  Country: US (occurrence: US)
  Receive Date: 20250304
  Receipt Date: 20250810
  Transmission Date: 20251021
  Serious: No
  Sender: ALEXION PHARMACEUTICALS
  Company Number: US-AstraZeneca-CH-00819431AP

PATIENT
  Sex: Male

DRUGS (1)
  1. BUDESONIDE\FORMOTEROL FUMARATE [Suspect]
     Active Substance: BUDESONIDE\FORMOTEROL FUMARATE

REACTIONS (3)
  - Aphonia [Not Recovered/Not Resolved]
  - Device delivery system issue [Unknown]
  - Device use issue [Unknown]
